FAERS Safety Report 8401537-0 (Version None)
Quarter: 2012Q2

REPORT INFORMATION
  Report Type: 
  Country: None (occurrence: None)
  Receive Date: 20120530
  Receipt Date: 20120530
  Transmission Date: 20120825
  Serious: Yes (Other)
  Sender: FDA-Public Use
  Company Number: None

PATIENT
  Age: 54 Year
  Sex: Female
  Weight: 65.7716 kg

DRUGS (1)
  1. NITROFURANTOIN (MONOHYDRATE/MACROCRYSTALS) [Suspect]
     Indication: URINARY TRACT INFECTION
     Dosage: 100 MG 2 PO
     Route: 048
     Dates: start: 20120525, end: 20120529

REACTIONS (5)
  - NIGHTMARE [None]
  - NEURALGIA [None]
  - DRUG INTOLERANCE [None]
  - FATIGUE [None]
  - HEADACHE [None]
